FAERS Safety Report 15537994 (Version 1)
Quarter: 2020Q3

REPORT INFORMATION
  Report Type: Report from Study
  Country: US (occurrence: US)
  Receive Date: 20181022
  Receipt Date: 20181022
  Transmission Date: 20201105
  Serious: Yes (Life-Threatening, Hospitalization, Congenital Anomaly, Other)
  Sender: FDA-Public Use
  Company Number: US-JNJFOC-20171107393

PATIENT
  Sex: Male
  Weight: 7.6 kg

DRUGS (8)
  1. RIVAROXABAN [Suspect]
     Active Substance: RIVAROXABAN
     Indication: EMBOLISM VENOUS
     Route: 064
     Dates: start: 20170901, end: 20171003
  2. RIVAROXABAN [Suspect]
     Active Substance: RIVAROXABAN
     Indication: EMBOLISM VENOUS
     Route: 064
     Dates: start: 20171003, end: 20171207
  3. FUROSEMIDE. [Concomitant]
     Active Substance: FUROSEMIDE
     Indication: FLUID OVERLOAD
     Route: 048
     Dates: start: 20170901
  4. DIGOXIN. [Concomitant]
     Active Substance: DIGOXIN
     Indication: FALLOT^S TETRALOGY
     Dosage: 50MCG/0.6ML
     Route: 048
     Dates: start: 20170901
  5. RIVAROXABAN [Concomitant]
     Active Substance: RIVAROXABAN
     Dosage: 1.6
     Route: 048
     Dates: start: 20170901, end: 20171207
  6. ZINC OXIDE. [Concomitant]
     Active Substance: ZINC OXIDE
     Indication: RASH
     Route: 061
     Dates: start: 20170901
  7. PANTOPRAZOLE [Concomitant]
     Active Substance: PANTOPRAZOLE
     Route: 042
     Dates: start: 2017
  8. RIVAROXABAN [Suspect]
     Active Substance: RIVAROXABAN
     Indication: EMBOLISM VENOUS
     Route: 064
     Dates: start: 20170901, end: 20171101

REACTIONS (2)
  - Respiratory failure [Recovered/Resolved]
  - Accidental underdose [Recovered/Resolved]

NARRATIVE: CASE EVENT DATE: 20171003
